FAERS Safety Report 12918134 (Version 2)
Quarter: 2016Q4

REPORT INFORMATION
  Report Type: Spontaneous
  Country: RU (occurrence: RU)
  Receive Date: 20161107
  Receipt Date: 20161116
  Transmission Date: 20170207
  Serious: Yes (Other)
  Sender: FDA-Public Use
  Company Number: RU-AMGEN-RUSSP2016146797

PATIENT
  Age: 62 Year
  Sex: Female

DRUGS (7)
  1. ALFACALCIDOL [Concomitant]
     Active Substance: ALFACALCIDOL
     Dosage: 0.25 MUG, UNK
     Dates: start: 20131201
  2. MIMPARA [Suspect]
     Active Substance: CINACALCET HYDROCHLORIDE
     Dosage: 60 MG, QD
     Route: 065
     Dates: start: 20140714
  3. MIMPARA [Suspect]
     Active Substance: CINACALCET HYDROCHLORIDE
     Indication: HYPERPARATHYROIDISM SECONDARY
     Dosage: 20 MG, UNK
     Route: 065
     Dates: start: 2012
  4. MIMPARA [Suspect]
     Active Substance: CINACALCET HYDROCHLORIDE
     Dosage: 30 MG, QD
     Route: 065
     Dates: start: 20131201
  5. MIMPARA [Suspect]
     Active Substance: CINACALCET HYDROCHLORIDE
     Dosage: 90 MG, QD
     Route: 065
     Dates: start: 201605
  6. ARANESP [Concomitant]
     Active Substance: DARBEPOETIN ALFA
     Indication: ANAEMIA
     Dosage: 60 MUG, Q2WK (TWO TIMES PER MONTH)
     Dates: start: 2014
  7. ETELCALCETIDE [Concomitant]
     Active Substance: ETELCALCETIDE
     Dosage: 5 MG, 3 TIMES PER WEEK
     Route: 042

REACTIONS (6)
  - Blood parathyroid hormone increased [Not Recovered/Not Resolved]
  - Vascular encephalopathy [Unknown]
  - Blood creatinine abnormal [Unknown]
  - Ischaemic stroke [Unknown]
  - Metabolic encephalopathy [Unknown]
  - Inappropriate schedule of drug administration [Unknown]

NARRATIVE: CASE EVENT DATE: 201305
